FAERS Safety Report 15138513 (Version 1)
Quarter: 2018Q3

REPORT INFORMATION
  Report Type: Spontaneous
  Country: DE (occurrence: DE)
  Receive Date: 20180713
  Receipt Date: 20180713
  Transmission Date: 20181010
  Serious: Yes (Hospitalization)
  Sender: FDA-Public Use
  Company Number: DE-AUROBINDO-AUR-APL-2018-035925

PATIENT
  Age: 68 Year
  Sex: Male
  Weight: 109 kg

DRUGS (10)
  1. AVELUMAB [Suspect]
     Active Substance: AVELUMAB
     Indication: COLORECTAL CANCER METASTATIC
     Dosage: 1120 MILLIGRAM DAILY
     Route: 042
     Dates: start: 20180607
  2. OXALIPLATIN CONCENTRATE FOR SOLUTION FOR INFUSION [Suspect]
     Active Substance: OXALIPLATIN
     Dosage: 212 MILLIGRAM DAILY;
     Route: 042
     Dates: start: 20180508
  3. 5?FU                               /00098801/ [Suspect]
     Active Substance: FLUOROURACIL
     Dosage: 1000 MILLIGRAM DAILY;
     Route: 042
     Dates: start: 20180613
  4. CETUXIMAB. [Suspect]
     Active Substance: CETUXIMAB
     Indication: COLORECTAL CANCER METASTATIC
     Dosage: 625 MILLIGRAM, DAILY
     Route: 042
     Dates: start: 20180508
  5. LEUCOVORIN                         /00566701/ [Suspect]
     Active Substance: LEUCOVORIN
     Indication: COLORECTAL CANCER METASTATIC
     Dosage: 1000 MILLIGRAM DAILY;
     Route: 042
     Dates: start: 20180608
  6. 5?FU                               /00098801/ [Suspect]
     Active Substance: FLUOROURACIL
     Indication: COLORECTAL CANCER METASTATIC
     Dosage: 1000 MILLIGRAM DAILY;
     Route: 042
     Dates: start: 20180508
  7. LEUCOVORIN                         /00566701/ [Suspect]
     Active Substance: LEUCOVORIN
     Dosage: 1000 MILLIGRAM DAILY;
     Route: 042
     Dates: start: 20180508
  8. OXALIPLATIN CONCENTRATE FOR SOLUTION FOR INFUSION [Suspect]
     Active Substance: OXALIPLATIN
     Indication: COLORECTAL CANCER METASTATIC
     Dosage: 212 MILLIGRAM DAILY;
     Route: 042
     Dates: start: 20180607
  9. CETUXIMAB. [Suspect]
     Active Substance: CETUXIMAB
     Dosage: 625 MILLIGRAM DAILY;
     Route: 042
     Dates: start: 20180607
  10. AVELUMAB [Suspect]
     Active Substance: AVELUMAB
     Dosage: 1120 MILLIGRAM DAILY;
     Route: 042
     Dates: start: 20180522

REACTIONS (1)
  - Dermatitis acneiform [Not Recovered/Not Resolved]

NARRATIVE: CASE EVENT DATE: 20180618
